FAERS Safety Report 4374004-1 (Version None)
Quarter: 2004Q2

REPORT INFORMATION
  Report Type: 
  Country: None (occurrence: None)
  Receive Date: 20040603
  Receipt Date: 20040519
  Transmission Date: 20050107
  Serious: Yes (Hospitalization)
  Sender: FDA-Public Use
  Company Number: JP_040402955

PATIENT
  Age: 55 Year
  Sex: Female
  Weight: 60 kg

DRUGS (4)
  1. ZYPREXA [Suspect]
     Indication: SCHIZOPHRENIA
     Dosage: 10 MG/1 AT BEDTIME
     Dates: start: 20031114, end: 20031223
  2. ROHYPNOL (FLUNITRAZEPAM) [Concomitant]
  3. ARTANE [Concomitant]
  4. SENNOSIDE A+B [Concomitant]

REACTIONS (10)
  - CONVULSION [None]
  - DELIRIUM [None]
  - DEPRESSED LEVEL OF CONSCIOUSNESS [None]
  - EXTRAPYRAMIDAL DISORDER [None]
  - HYPONATRAEMIA [None]
  - MUSCLE RIGIDITY [None]
  - POLYDIPSIA [None]
  - RHABDOMYOLYSIS [None]
  - TREMOR [None]
  - WATER INTOXICATION [None]
